FAERS Safety Report 14779103 (Version 1)
Quarter: 2018Q2

REPORT INFORMATION
  Report Type: Spontaneous
  Country: US (occurrence: US)
  Receive Date: 20180419
  Receipt Date: 20180419
  Transmission Date: 20180711
  Serious: No
  Sender: FDA-Public Use
  Company Number: US-009507513-1804USA007412

PATIENT
  Age: 29 Year
  Sex: Female
  Weight: 71.66 kg

DRUGS (1)
  1. NEXPLANON [Suspect]
     Active Substance: ETONOGESTREL
     Indication: CONTRACEPTION
     Dosage: RIGHT ARM IMPLANT
     Route: 059
     Dates: start: 20160416

REACTIONS (7)
  - Amenorrhoea [Unknown]
  - Asthenia [Unknown]
  - Dizziness [Unknown]
  - Menorrhagia [Unknown]
  - Headache [Unknown]
  - Medical device site discomfort [Unknown]
  - Pain in extremity [Unknown]

NARRATIVE: CASE EVENT DATE: 20160416
